FAERS Safety Report 6227765-0 (Version None)
Quarter: 2009Q2

REPORT INFORMATION
  Report Type: 
  Country: None (occurrence: None)
  Receive Date: 20090610
  Receipt Date: 20090610
  Transmission Date: 20091009
  Serious: Yes (Other)
  Sender: FDA-Public Use
  Company Number: None

PATIENT
  Age: 67 Year
  Sex: Female
  Weight: 52.1637 kg

DRUGS (1)
  1. ACTONEL [Suspect]
     Indication: OSTEOPENIA
     Dates: start: 20090607, end: 20090607

REACTIONS (4)
  - BACK PAIN [None]
  - INSOMNIA [None]
  - MOBILITY DECREASED [None]
  - SPEECH DISORDER [None]
